FAERS Safety Report 5392115-9 (Version None)
Quarter: 2007Q3

REPORT INFORMATION
  Report Type: 
  Country: None (occurrence: None)
  Receive Date: 20070718
  Receipt Date: 20070718
  Transmission Date: 20080115
  Serious: Yes (Life-Threatening)
  Sender: FDA-Public Use
  Company Number: None

PATIENT
  Age: 50 Year
  Sex: Female
  Weight: 108.8633 kg

DRUGS (1)
  1. REQUIP [Suspect]
     Indication: RESTLESS LEGS SYNDROME
     Dosage: 2MG DAILY PO
     Route: 048
     Dates: start: 20040629, end: 20070501

REACTIONS (4)
  - ECONOMIC PROBLEM [None]
  - INSOMNIA [None]
  - PATHOLOGICAL GAMBLING [None]
  - SUICIDAL IDEATION [None]
